FAERS Safety Report 5951994-4 (Version None)
Quarter: 2008Q4

REPORT INFORMATION
  Report Type: 
  Country: None (occurrence: None)
  Receive Date: 20081113
  Receipt Date: 20071116
  Transmission Date: 20090506
  Serious: No
  Sender: FDA-Public Use
  Company Number: A0690104A

PATIENT
  Age: 67 Year
  Sex: Female
  Weight: 78.6 kg

DRUGS (5)
  1. COREG [Suspect]
     Indication: HYPERTENSION
     Route: 048
  2. COREG CR [Suspect]
     Indication: HYPERTENSION
     Dosage: 20MG PER DAY
     Route: 048
     Dates: start: 20071027, end: 20071029
  3. VITAMINS [Concomitant]
  4. FLAX SEED [Concomitant]
  5. VITAMIN D [Concomitant]

REACTIONS (3)
  - ASTHENIA [None]
  - DRUG INEFFECTIVE [None]
  - DYSPNOEA [None]
